FAERS Safety Report 5311495-3 (Version None)
Quarter: 2007Q2

REPORT INFORMATION
  Report Type: 
  Country: None (occurrence: None)
  Receive Date: 20070430
  Receipt Date: 20070426
  Transmission Date: 20071010
  Serious: Yes (Other)
  Sender: FDA-Public Use
  Company Number: US-GLAXOSMITHKLINE-A0641592A

PATIENT
  Age: 69 Year
  Sex: Male

DRUGS (6)
  1. REQUIP [Suspect]
     Indication: RESTLESS LEGS SYNDROME
     Dosage: 20MG PER DAY
     Route: 048
     Dates: start: 20070115, end: 20070224
  2. CARDIZEM [Concomitant]
  3. BLOOD PRESSURE MEDICATION [Concomitant]
  4. ASPIRIN [Concomitant]
  5. LOTENSIN [Concomitant]
  6. CHOLESTEROL REDUCING AGENT [Concomitant]

REACTIONS (5)
  - ABNORMAL DREAMS [None]
  - DIZZINESS [None]
  - HALLUCINATION [None]
  - POOR QUALITY SLEEP [None]
  - SOMNOLENCE [None]
